FAERS Safety Report 11033543 (Version 1)
Quarter: 2015Q2

REPORT INFORMATION
  Report Type: Report from Study
  Country: AU (occurrence: AU)
  Receive Date: 20150415
  Receipt Date: 20150415
  Transmission Date: 20150821
  Serious: Yes (Hospitalization)
  Sender: FDA-Public Use
  Company Number: AU-PFIZER INC-2014337219

PATIENT
  Age: 46 Year
  Sex: Female
  Weight: 53 kg

DRUGS (2)
  1. FASLODEX [Suspect]
     Active Substance: FULVESTRANT
     Indication: BREAST CANCER METASTATIC
     Dosage: 500 MG, CYCLIC, DAY 1
     Route: 030
     Dates: start: 20140814
  2. PALBOCICLIB [Suspect]
     Active Substance: PALBOCICLIB
     Indication: BREAST CANCER METASTATIC
     Dosage: 100 MG, CYCLIC, (3 WEEKS ON, 1 WEEK OFF), LAST ADMINISTERED DOSE BEFORE THE EVENT:15NOV2014
     Route: 048
     Dates: start: 20140814, end: 20141115

REACTIONS (1)
  - Pyrexia [Recovered/Resolved]

NARRATIVE: CASE EVENT DATE: 20141204
